FAERS Safety Report 8326912-4 (Version None)
Quarter: 2012Q2

REPORT INFORMATION
  Report Type: 
  Country: None (occurrence: None)
  Receive Date: 20120501
  Receipt Date: 20120424
  Transmission Date: 20120825
  Serious: Yes (Hospitalization, Other)
  Sender: FDA-Public Use
  Company Number: DE-ABBOTT-12P-062-0895355-00

PATIENT
  Sex: Female

DRUGS (10)
  1. NOVALGIN [Concomitant]
     Indication: PRODUCT USED FOR UNKNOWN INDICATION
  2. CLONAZEPAM [Concomitant]
     Indication: PRODUCT USED FOR UNKNOWN INDICATION
  3. HUMIRA [Suspect]
     Indication: CROHN'S DISEASE
     Route: 058
     Dates: start: 20090731, end: 20111205
  4. CORTISONE ACETATE [Concomitant]
     Indication: PRODUCT USED FOR UNKNOWN INDICATION
  5. HUMIRA [Suspect]
     Route: 058
     Dates: start: 20120403
  6. MESALAMINE [Concomitant]
     Indication: PRODUCT USED FOR UNKNOWN INDICATION
  7. FENTANYL PLASTER [Concomitant]
     Indication: PRODUCT USED FOR UNKNOWN INDICATION
  8. KEPPRA [Concomitant]
     Indication: PRODUCT USED FOR UNKNOWN INDICATION
  9. HUMIRA [Suspect]
     Route: 058
     Dates: end: 20120307
  10. METHOTREXATE [Concomitant]
     Indication: PRODUCT USED FOR UNKNOWN INDICATION

REACTIONS (7)
  - FATIGUE [None]
  - GOITRE [None]
  - THYMUS ENLARGEMENT [None]
  - MYASTHENIA GRAVIS [None]
  - ABSCESS [None]
  - ASTHENIA [None]
  - GASTROINTESTINAL HAEMORRHAGE [None]
